FAERS Safety Report 7638330-2 (Version None)
Quarter: 2011Q3

REPORT INFORMATION
  Report Type: 
  Country: None (occurrence: None)
  Receive Date: 20110727
  Receipt Date: 20110727
  Transmission Date: 20111222
  Serious: No
  Sender: FDA-Public Use
  Company Number: None

PATIENT
  Age: 52 Year
  Sex: Female
  Weight: 113.39 kg

DRUGS (1)
  1. VICTOZA [Suspect]
     Indication: DIABETES MELLITUS
     Dates: start: 20110508, end: 20110726

REACTIONS (3)
  - VAGINAL HAEMORRHAGE [None]
  - AXILLARY PAIN [None]
  - BREAST TENDERNESS [None]
